FAERS Safety Report 9789982 (Version 2)
Quarter: 2014Q2

REPORT INFORMATION
  Report Type: Other
  Country: GB (occurrence: GB)
  Receive Date: 20131231
  Receipt Date: 20140414
  Transmission Date: 20141212
  Serious: Yes (Life-Threatening, Hospitalization, Other)
  Sender: FDA-Public Use
  Company Number: GB-TARO PHARMACEUTICALS U.S.A., INC-2013SUN05283

PATIENT
  Age: 11 Year
  Sex: Male
  Weight: 79 kg

DRUGS (1)
  1. CARBAMAZEPINE [Suspect]
     Indication: EPILEPSY
     Dosage: UNK
     Route: 048
     Dates: start: 20131114, end: 20131127

REACTIONS (7)
  - Systemic inflammatory response syndrome [Not Recovered/Not Resolved]
  - Multi-organ failure [Recovering/Resolving]
  - Infection [Not Recovered/Not Resolved]
  - Toxic epidermal necrolysis [Not Recovered/Not Resolved]
  - Blister [Not Recovered/Not Resolved]
  - Skin exfoliation [Not Recovered/Not Resolved]
  - Oral mucosal blistering [Not Recovered/Not Resolved]
